FAERS Safety Report 5953803-6 (Version None)
Quarter: 2008Q4

REPORT INFORMATION
  Report Type: 
  Country: None (occurrence: None)
  Receive Date: 20081114
  Receipt Date: 20080922
  Transmission Date: 20090506
  Serious: Yes (Other)
  Sender: FDA-Public Use
  Company Number: US-PFIZER INC-2008080672

PATIENT
  Sex: Male

DRUGS (2)
  1. DIFLUCAN [Suspect]
     Indication: ORAL DISCOMFORT
  2. DIFLUCAN [Suspect]
     Indication: ORAL CANDIDIASIS

REACTIONS (3)
  - CEREBRAL PALSY [None]
  - CHOREA [None]
  - THERAPEUTIC RESPONSE UNEXPECTED [None]
